FAERS Safety Report 4686291-0 (Version None)
Quarter: 2005Q2

REPORT INFORMATION
  Report Type: 
  Country: None (occurrence: None)
  Receive Date: 20050606
  Receipt Date: 20050527
  Transmission Date: 20051028
  Serious: Yes (Other)
  Sender: FDA-Public Use
  Company Number: 2005080902

PATIENT
  Age: 64 Year
  Sex: Female

DRUGS (4)
  1. ATORVASTATIN CALCIUM [Suspect]
     Indication: ILL-DEFINED DISORDER
     Dosage: ORAL
     Route: 048
  2. ALTACE [Concomitant]
  3. TYLENOL [Concomitant]
  4. DRUG USED IN DIABETES (DRUG USED IN DIABETES) [Concomitant]

REACTIONS (1)
  - HEPATIC CIRRHOSIS [None]
